FAERS Safety Report 13202383 (Version 1)
Quarter: 2017Q1

REPORT INFORMATION
  Report Type: Spontaneous
  Country: US (occurrence: US)
  Receive Date: 20170209
  Receipt Date: 20170209
  Transmission Date: 20170428
  Serious: No
  Sender: FDA-Public Use
  Company Number: US-PFIZER INC-2017055057

PATIENT

DRUGS (1)
  1. LYRICA [Suspect]
     Active Substance: PREGABALIN
     Dosage: 600 MG, DAILY (200 MG 3 DAILY)

REACTIONS (4)
  - Feeling abnormal [Unknown]
  - Vision blurred [Unknown]
  - Weight increased [Unknown]
  - Visual impairment [Unknown]
